FAERS Safety Report 5366879-4 (Version None)
Quarter: 2007Q2

REPORT INFORMATION
  Report Type: 
  Country: None (occurrence: None)
  Receive Date: 20070622
  Receipt Date: 20061116
  Transmission Date: 20071010
  Serious: No
  Sender: FDA-Public Use
  Company Number: US-ASTRAZENECA-2006UW24603

PATIENT
  Age: 72 Year
  Sex: Male
  Weight: 77.1 kg

DRUGS (4)
  1. RHINOCORT [Suspect]
     Indication: EMPHYSEMA
     Dosage: 1 SPRAY
     Route: 045
  2. ALBUTEROL [Concomitant]
  3. METOPROLOL SUCCINATE [Concomitant]
  4. SPIRONOLACTONE [Concomitant]

REACTIONS (2)
  - COUGH [None]
  - RHINORRHOEA [None]
